FAERS Safety Report 19310607 (Version 5)
Quarter: 2021Q4

REPORT INFORMATION
  Report Type: Spontaneous
  Country: CN (occurrence: CN)
  Receive Date: 20210526
  Receipt Date: 20211113
  Transmission Date: 20220303
  Serious: Yes (Life-Threatening, Hospitalization, Other)
  Sender: FDA-Public Use
  Company Number: NVSC2021CN117407

PATIENT
  Age: 40 Year
  Sex: Male

DRUGS (23)
  1. TEGRETOL [Suspect]
     Active Substance: CARBAMAZEPINE
     Indication: Trigeminal neuralgia
     Dosage: 7 DF (7 TABLETS INTERMITTENTLY)
     Route: 065
     Dates: start: 20210418
  2. TEGRETOL [Suspect]
     Active Substance: CARBAMAZEPINE
     Indication: Toothache
     Dosage: 1 DF, (1 TABLET WHEN THE PAIN OCCUR, A TOTAL OF ABOUT 7 TABLETS)
     Route: 048
     Dates: start: 20210508, end: 20210510
  3. VITAMIN C [Concomitant]
     Active Substance: ASCORBIC ACID
     Indication: Capillary permeability
     Dosage: UNK
     Route: 065
  4. VITAMIN C [Concomitant]
     Active Substance: ASCORBIC ACID
     Indication: Gastric disorder
     Dosage: 2 G, QD (IVGTT)
     Route: 042
  5. VITAMIN C [Concomitant]
     Active Substance: ASCORBIC ACID
     Indication: Electrolyte imbalance
  6. LANSOPRAZOLE [Concomitant]
     Active Substance: LANSOPRAZOLE
     Indication: Prophylaxis
     Dosage: 15 MG, QD (TWO TABLETS EACH TIME)
     Route: 048
  7. LANSOPRAZOLE [Concomitant]
     Active Substance: LANSOPRAZOLE
     Indication: Stress ulcer
  8. SUCRALFATE [Concomitant]
     Active Substance: SUCRALFATE
     Indication: Gastrointestinal mucosal disorder
     Dosage: UNK (SUSPENSION GEL)
     Route: 065
  9. CHLORPHENIRAMINE MALEATE [Concomitant]
     Active Substance: CHLORPHENIRAMINE MALEATE
     Indication: Product used for unknown indication
     Dosage: UNK
     Route: 065
  10. CYPROHEPTADINE HYDROCHLORIDE [Concomitant]
     Active Substance: CYPROHEPTADINE HYDROCHLORIDE
     Indication: Product used for unknown indication
     Dosage: UNK
     Route: 065
  11. METHYLPREDNISOLONE [Concomitant]
     Active Substance: METHYLPREDNISOLONE
     Indication: Product used for unknown indication
     Dosage: 160 MG, QD (IVGTT)
     Route: 042
  12. METHYLPREDNISOLONE [Concomitant]
     Active Substance: METHYLPREDNISOLONE
     Dosage: 4 MG, BID (5 TABLES EACH TIME)
     Route: 048
  13. LEVOCETIRIZINE [Concomitant]
     Active Substance: LEVOCETIRIZINE
     Indication: Product used for unknown indication
     Dosage: 5 MG, QD
     Route: 065
  14. LEVOCETIRIZINE [Concomitant]
     Active Substance: LEVOCETIRIZINE
     Dosage: 5 MG AT NIGHT, 1 TABLET EACH TIME
     Route: 048
  15. DEXAMETHASONE [Concomitant]
     Active Substance: DEXAMETHASONE
     Indication: Skin lesion
     Dosage: UNK
     Route: 061
  16. HYALURONIC ACID [Concomitant]
     Active Substance: HYALURONIC ACID
     Indication: Skin lesion
     Dosage: UNK
     Route: 061
  17. BEPOTASTINE BESYLATE [Concomitant]
     Active Substance: BEPOTASTINE BESYLATE
     Indication: Product used for unknown indication
     Dosage: 10 MG, BID
     Route: 065
  18. CALTRATE [Concomitant]
     Active Substance: CALCIUM CARBONATE
     Indication: Product used for unknown indication
     Dosage: 600 MG, QD (1 TABLET EACH TIME)
     Route: 048
  19. OLOPATADINE HYDROCHLORIDE [Concomitant]
     Active Substance: OLOPATADINE HYDROCHLORIDE
     Indication: Product used for unknown indication
     Dosage: 5 MG, BID
     Route: 048
  20. POTASSIUM CHLORIDE [Concomitant]
     Active Substance: POTASSIUM CHLORIDE
     Indication: Product used for unknown indication
     Dosage: 1 G, BID (1 BAG EACH TIME)
     Route: 065
  21. BORIC ACID [Concomitant]
     Active Substance: BORIC ACID
     Indication: Product used for unknown indication
     Route: 065
  22. BORIC ACID [Concomitant]
     Active Substance: BORIC ACID
     Indication: Product used for unknown indication
     Dosage: UNK (2G: 20G] TWICE A DAY)
     Route: 061
  23. INSULIN GLULISINE [Concomitant]
     Active Substance: INSULIN GLULISINE
     Indication: Product used for unknown indication
     Dosage: 300 IU, TID, 4/5/4 IU BEFORE THREE MEALS
     Route: 058

REACTIONS (36)
  - Herpes virus infection [Recovering/Resolving]
  - Scrotal ulcer [Recovering/Resolving]
  - Mouth ulceration [Recovering/Resolving]
  - Oral pain [Recovering/Resolving]
  - Conjunctival hyperaemia [Recovering/Resolving]
  - Scab [Recovering/Resolving]
  - Diarrhoea [Recovering/Resolving]
  - Rash [Recovering/Resolving]
  - Macule [Recovering/Resolving]
  - Skin exfoliation [Recovering/Resolving]
  - Leukoplakia oral [Recovering/Resolving]
  - Drug eruption [Recovering/Resolving]
  - Erythema [Recovering/Resolving]
  - Drug hypersensitivity [Recovering/Resolving]
  - Steroid diabetes [Not Recovered/Not Resolved]
  - Hypertriglyceridaemia [Recovering/Resolving]
  - Sinus tachycardia [Recovering/Resolving]
  - Pruritus [Recovering/Resolving]
  - Pyrexia [Recovering/Resolving]
  - Eating disorder [Recovering/Resolving]
  - Oropharyngeal pain [Unknown]
  - Gastric ulcer [Unknown]
  - Anaphylactic shock [Unknown]
  - Respiratory failure [Unknown]
  - Cardiac failure [Unknown]
  - Renal failure [Unknown]
  - Anaphylactic reaction [Unknown]
  - Poor quality sleep [Unknown]
  - Infection [Unknown]
  - Scrotum erosion [Unknown]
  - Oral herpes [Unknown]
  - Defaecation disorder [Unknown]
  - Lip erosion [Unknown]
  - Blister [Unknown]
  - Oliguria [Unknown]
  - Decreased appetite [Unknown]

NARRATIVE: CASE EVENT DATE: 20210506
